FAERS Safety Report 13564957 (Version 2)
Quarter: 2017Q2

REPORT INFORMATION
  Report Type: Spontaneous
  Country: FR (occurrence: FR)
  Receive Date: 20170519
  Receipt Date: 20170522
  Transmission Date: 20170830
  Serious: Yes (Life-Threatening)
  Sender: FDA-Public Use
  Company Number: FR-ASTRAZENECA-2017SE52524

PATIENT
  Age: 2521 Week
  Sex: Female

DRUGS (4)
  1. CRESTOR [Suspect]
     Active Substance: ROSUVASTATIN CALCIUM
     Indication: HYPERCHOLESTEROLAEMIA
     Dosage: 10 MG, 10 TABLETS, SINGLE INTAKE
     Route: 048
     Dates: start: 20170213, end: 20170213
  2. METFORMIN [Suspect]
     Active Substance: METFORMIN HYDROCHLORIDE
     Indication: DIABETES MELLITUS
     Dosage: 80 TABLETS, SINGLE INTAKE, NON AZ DRUG
     Route: 048
     Dates: start: 20170213, end: 20170213
  3. LANTUS [Suspect]
     Active Substance: INSULIN GLARGINE
     Indication: DIABETES MELLITUS
     Dosage: 100 UNITS/ML, 1 DF IN SINGLE INTAKE
     Route: 058
     Dates: start: 20170213, end: 20170213
  4. IRBESARTAN. [Suspect]
     Active Substance: IRBESARTAN
     Indication: HYPERTENSION
     Dosage: 150 MG, 40 TABLETS, SINGLE INTAKE
     Route: 048
     Dates: start: 20170213, end: 20170213

REACTIONS (5)
  - Hypotension [Recovered/Resolved]
  - Circulatory collapse [Recovered/Resolved]
  - Tachycardia [Recovered/Resolved]
  - Hypoglycaemia [Recovered/Resolved]
  - Lactic acidosis [Recovered/Resolved]

NARRATIVE: CASE EVENT DATE: 20170213
